FAERS Safety Report 7772784-6 (Version None)
Quarter: 2011Q3

REPORT INFORMATION
  Report Type: 
  Country: None (occurrence: None)
  Receive Date: 20110922
  Receipt Date: 20100517
  Transmission Date: 20111222
  Serious: Yes (Hospitalization)
  Sender: FDA-Public Use
  Company Number: US-ASTRAZENECA-2009SE16609

PATIENT
  Age: 19287 Day
  Sex: Female

DRUGS (6)
  1. LIPITOR [Concomitant]
     Dates: start: 20090108
  2. CLONIDINE [Concomitant]
     Route: 048
     Dates: start: 20090108
  3. IBUPROFEN [Concomitant]
     Dosage: 800 MG PRN Q 8 H
     Dates: start: 20090101
  4. DIOVAN [Concomitant]
     Dosage: 80 TO 160 MG
     Dates: start: 20090108
  5. ASPIRIN [Concomitant]
     Dates: start: 20090108
  6. SEROQUEL [Suspect]
     Dosage: 25 TO 300 MG
     Route: 048
     Dates: start: 20010116

REACTIONS (2)
  - DIABETIC KETOACIDOSIS [None]
  - DIABETES MELLITUS [None]
